FAERS Safety Report 10194307 (Version 1)
Quarter: 2014Q2

REPORT INFORMATION
  Report Type: Spontaneous
  Country: US (occurrence: US)
  Receive Date: 20140526
  Receipt Date: 20140526
  Transmission Date: 20141212
  Serious: No
  Sender: FDA-Public Use
  Company Number: US-009507513-1405USA009021

PATIENT
  Age: 23 Year
  Sex: Female

DRUGS (2)
  1. NUVARING [Suspect]
     Indication: CONTRACEPTION
     Dosage: A RING 3 WEEKS IN, 1 WEEK OUT
     Route: 067
     Dates: start: 201311
  2. NUVARING [Suspect]
     Indication: MENSTRUATION IRREGULAR

REACTIONS (4)
  - Medical device discomfort [Unknown]
  - No adverse event [Unknown]
  - Device breakage [Unknown]
  - Drug administration error [Unknown]
